FAERS Safety Report 8838747 (Version 2)
Quarter: 2013Q1

REPORT INFORMATION
  Report Type: Spontaneous
  Country: US (occurrence: US)
  Receive Date: 20121012
  Receipt Date: 20130102
  Transmission Date: 20140127
  Serious: No
  Sender: FDA-Public Use
  Company Number: US-009507513-1210USA001605

PATIENT
  Sex: Female

DRUGS (1)
  1. NUVARING [Suspect]
     Indication: CONTRACEPTION
     Dosage: 0.015 DAILY
     Route: 067
     Dates: start: 201207

REACTIONS (3)
  - Drug dose omission [Recovered/Resolved]
  - Product shape issue [Recovered/Resolved]
  - No adverse event [Recovered/Resolved]
